FAERS Safety Report 24431495 (Version 1)
Quarter: 2024Q4

REPORT INFORMATION
  Report Type: Other
  Country: US (occurrence: US)
  Receive Date: 20241014
  Receipt Date: 20241014
  Transmission Date: 20250115
  Serious: Yes (Hospitalization)
  Sender: ORBION PHARMACEUTICALS PRIVATE LIMITED
  Company Number: US-OrBion Pharmaceuticals Private Limited-2162966

PATIENT
  Age: 59 Year
  Sex: Female

DRUGS (6)
  1. AMLODIPINE BESYLATE [Suspect]
     Active Substance: AMLODIPINE BESYLATE
     Indication: Intentional overdose
  2. CARVEDILOL [Suspect]
     Active Substance: CARVEDILOL
  3. CLONIDINE [Suspect]
     Active Substance: CLONIDINE
  4. ALPRAZOLAM [Suspect]
     Active Substance: ALPRAZOLAM
  5. TRAMADOL [Suspect]
     Active Substance: TRAMADOL
  6. CARISOPRODOL [Suspect]
     Active Substance: CARISOPRODOL

REACTIONS (4)
  - Cardiogenic shock [Recovered/Resolved]
  - Drug screen positive [Unknown]
  - Intentional overdose [Recovered/Resolved]
  - Distributive shock [Recovered/Resolved]
